FAERS Safety Report 11192665 (Version 1)
Quarter: 2015Q2

REPORT INFORMATION
  Report Type: Spontaneous
  Country: US (occurrence: None)
  Receive Date: 20150615
  Receipt Date: 20150615
  Transmission Date: 20150821
  Serious: Yes (Hospitalization)
  Sender: FDA-Public Use
  Company Number: None

PATIENT
  Age: 2 Month
  Sex: Female
  Weight: 3.9 kg

DRUGS (3)
  1. DAUNORUBICIN [Suspect]
     Active Substance: DAUNORUBICIN
     Dosage: RECEIVED TOTAL OF 3 DOSES ON DAYS 1,3, 5 DOSED AT 1.7MG/KG/DOSE TOTALLING 6.6MG EACH
     Dates: end: 20150601
  2. CYTARABINE. [Suspect]
     Active Substance: CYTARABINE
     Dosage: DOSED AT 3.MG/KG/DOSE AT 13MG EACH. RECEIVED ONLY 15 DOSES OF IV ARA C INSTEAD OF 2 RESULTING IN 195MG. STUDY CHAIR WAS MADE AWARE OF OUR PLAN. ALSO, RECEIVED 20MG IT ARAC (AGE-BASED DOSING) ON 5/28/15.?
     Dates: end: 20150604
  3. ETOPOSIDE (VP-16) [Suspect]
     Active Substance: ETOPOSIDE
     Dosage: RECEIVED ON DAYS 105 AT 3.3MG/KG/DOSE TOTALLING 13MG EACH
     Dates: end: 20150601

REACTIONS (8)
  - Abdominal distension [None]
  - General physical health deterioration [None]
  - Hypotension [None]
  - Oedema [None]
  - Fluid overload [None]
  - Dialysis [None]
  - Renal failure [None]
  - Pneumonia klebsiella [None]

NARRATIVE: CASE EVENT DATE: 20150604
